FAERS Safety Report 15491378 (Version 1)
Quarter: 2018Q4

REPORT INFORMATION
  Report Type: Spontaneous
  Country: TR (occurrence: TR)
  Receive Date: 20181012
  Receipt Date: 20181012
  Transmission Date: 20190205
  Serious: Yes (Hospitalization, Other)
  Sender: FDA-Public Use
  Company Number: TR-STRIDES ARCOLAB LIMITED-2018SP008828

PATIENT
  Age: 26 Year
  Sex: Male

DRUGS (3)
  1. PREDNISOLONE. [Suspect]
     Active Substance: PREDNISOLONE
     Indication: RENAL TRANSPLANT
     Dosage: 5 MG PER DAY
     Route: 065
  2. MYCOPHENOLATE MOFETIL. [Suspect]
     Active Substance: MYCOPHENOLATE MOFETIL
     Indication: RENAL TRANSPLANT
     Dosage: 1500 MG PER DAY
     Route: 065
  3. CICLOSPORIN [Suspect]
     Active Substance: CYCLOSPORINE
     Indication: RENAL TRANSPLANT
     Dosage: 150 MG PER DAY
     Route: 065

REACTIONS (9)
  - Acute psychosis [Recovered/Resolved]
  - Communication disorder [Recovered/Resolved]
  - Thinking abnormal [Unknown]
  - Persecutory delusion [Recovered/Resolved]
  - Mutism [Recovered/Resolved]
  - Delusion of reference [Recovered/Resolved]
  - Abnormal behaviour [Recovered/Resolved]
  - Negativism [Recovered/Resolved]
  - Agitation [Recovered/Resolved]
